FAERS Safety Report 19061803 (Version 1)
Quarter: 2021Q1

REPORT INFORMATION
  Report Type: Spontaneous
  Country: US (occurrence: US)
  Receive Date: 20210325
  Receipt Date: 20210325
  Transmission Date: 20210420
  Serious: Yes (Hospitalization, Other)
  Sender: FDA-Public Use
  Company Number: None

PATIENT
  Age: 64 Year
  Sex: Female

DRUGS (5)
  1. CYCLOBENZAPR [Concomitant]
     Active Substance: CYCLOBENZAPRINE
  2. DULOXETINE. [Concomitant]
     Active Substance: DULOXETINE
  3. FOLIC ACID. [Concomitant]
     Active Substance: FOLIC ACID
  4. ATORVASTATIN [Concomitant]
     Active Substance: ATORVASTATIN
  5. XELJANZ XR [Suspect]
     Active Substance: TOFACITINIB CITRATE
     Indication: RHEUMATOID ARTHRITIS
     Route: 048
     Dates: start: 20190725

REACTIONS (2)
  - Therapy interrupted [None]
  - Knee operation [None]

NARRATIVE: CASE EVENT DATE: 20210319
